FAERS Safety Report 18857085 (Version 3)
Quarter: 2021Q2

REPORT INFORMATION
  Report Type: Report from Study
  Country: None (occurrence: CA)
  Receive Date: 20210208
  Receipt Date: 20210418
  Transmission Date: 20210717
  Serious: Yes (Other)
  Sender: FDA-Public Use
  Company Number: CA-ABBVIE-20K-028-3683521-00

PATIENT
  Sex: Female

DRUGS (1)
  1. SKYRIZI [Suspect]
     Active Substance: RISANKIZUMAB-RZAA
     Indication: PSORIASIS
     Route: 058
     Dates: start: 20201123, end: 20210315

REACTIONS (16)
  - Musculoskeletal disorder [Not Recovered/Not Resolved]
  - Erythema [Unknown]
  - Drug ineffective [Unknown]
  - Skin exfoliation [Unknown]
  - Skin lesion [Unknown]
  - Skin fissures [Not Recovered/Not Resolved]
  - Rheumatoid arthritis [Not Recovered/Not Resolved]
  - Skin plaque [Unknown]
  - Peripheral swelling [Unknown]
  - Rash papular [Recovering/Resolving]
  - Skin disorder [Not Recovered/Not Resolved]
  - Sensitive skin [Unknown]
  - Eye infection [Unknown]
  - Deafness [Recovering/Resolving]
  - Skin exfoliation [Unknown]
  - General physical condition abnormal [Unknown]

NARRATIVE: CASE EVENT DATE: 2020
